FAERS Safety Report 7292572-7 (Version None)
Quarter: 2011Q1

REPORT INFORMATION
  Report Type: 
  Country: None (occurrence: None)
  Receive Date: 20110215
  Receipt Date: 20110204
  Transmission Date: 20110831
  Serious: Yes (Other)
  Sender: FDA-Public Use
  Company Number: US-JNJFOC-20110202192

PATIENT
  Sex: Female

DRUGS (6)
  1. VITAMIN B [Concomitant]
  2. IRON [Concomitant]
  3. PROZAC [Concomitant]
  4. CALCIUM [Concomitant]
  5. REMICADE [Suspect]
     Indication: CROHN'S DISEASE
     Route: 042
  6. QUESTRAN [Concomitant]

REACTIONS (2)
  - SKIN LESION [None]
  - NOCARDIOSIS [None]
